FAERS Safety Report 23113365 (Version 9)
Quarter: 2024Q1

REPORT INFORMATION
  Report Type: Report from Study
  Country: JP (occurrence: JP)
  Receive Date: 20231027
  Receipt Date: 20240105
  Transmission Date: 20240409
  Serious: Yes (Other)
  Sender: FDA-Public Use
  Company Number: JP-JNJFOC-20231065510

PATIENT
  Age: 73 Year
  Sex: Male

DRUGS (18)
  1. ERLEADA [Suspect]
     Active Substance: APALUTAMIDE
     Indication: Prostate cancer
     Dosage: AFTER BREAKFAST
     Route: 048
     Dates: start: 20230727
  2. ERLEADA [Suspect]
     Active Substance: APALUTAMIDE
     Dosage: AFTER DINNER
     Route: 048
     Dates: start: 2023
  3. ERLEADA [Suspect]
     Active Substance: APALUTAMIDE
     Dosage: AFTER BREAKFAST
     Route: 048
     Dates: start: 2023
  4. ERLEADA [Suspect]
     Active Substance: APALUTAMIDE
     Dosage: AROUND 7 AM
     Route: 048
     Dates: start: 20230810, end: 20230810
  5. ERLEADA [Suspect]
     Active Substance: APALUTAMIDE
     Dosage: AFTER DINNER
     Route: 048
     Dates: start: 20230811, end: 202309
  6. ERLEADA [Suspect]
     Active Substance: APALUTAMIDE
     Dosage: AFTER DINNER
     Route: 048
     Dates: start: 202309, end: 20231002
  7. ERLEADA [Suspect]
     Active Substance: APALUTAMIDE
     Dosage: AFTER DINNER
     Route: 048
     Dates: start: 20231004
  8. LEUPLIN [Suspect]
     Active Substance: LEUPROLIDE ACETATE
     Indication: Prostate cancer
     Dosage: DOSE UNKNOWN
     Route: 058
  9. HEPARIN [Suspect]
     Active Substance: HEPARIN SODIUM
     Indication: Dry skin prophylaxis
     Dosage: DOSE UNKNOWN
     Route: 061
     Dates: end: 20231027
  10. UREA [Concomitant]
     Active Substance: UREA
     Indication: Dry skin
     Dosage: DOSE UNKNOWN
     Route: 061
  11. ENSURE [Concomitant]
     Active Substance: AMINO ACIDS\DEXTROSE\ELECTROLYTES NOS\SOYBEAN OIL\VITAMINS
     Indication: Nutritional supplementation
     Dosage: 3 DFS/DAY
     Route: 048
     Dates: start: 202308
  12. ENSURE [Concomitant]
     Active Substance: AMINO ACIDS\DEXTROSE\ELECTROLYTES NOS\SOYBEAN OIL\VITAMINS
     Dosage: 1 DF/DAY
     Route: 048
  13. ESOMEPRAZOLE MAGNESIUM [Concomitant]
     Active Substance: ESOMEPRAZOLE\ESOMEPRAZOLE MAGNESIUM\ESOMEPRAZOLE MAGNESIUM DIHYDRATE
     Indication: Gastrooesophageal reflux disease
     Dosage: DOSE UNKNOWN
     Route: 048
     Dates: start: 202308
  14. TOVIAZ [Concomitant]
     Active Substance: FESOTERODINE FUMARATE
     Indication: Urine output increased
     Dosage: DOSE UNKNOWN
     Route: 048
  15. BETAMETHASONE DIPROPIONATE [Concomitant]
     Active Substance: BETAMETHASONE DIPROPIONATE
     Indication: Skin irritation
     Dosage: DOSE UNKNOWN
     Route: 061
     Dates: start: 202311, end: 20231107
  16. UREA [Concomitant]
     Active Substance: UREA
     Indication: Skin irritation
     Dosage: DOSE UNKNOWN
     Route: 061
     Dates: start: 20231108
  17. UNSPECIFIED INGREDIENT [Concomitant]
     Active Substance: UNSPECIFIED INGREDIENT
     Indication: Product used for unknown indication
     Dosage: DOSE UNKNOWN
     Route: 065
     Dates: start: 20231002, end: 20231002
  18. LOXOPROFEN SODIUM [Concomitant]
     Active Substance: LOXOPROFEN SODIUM
     Indication: Pain
     Dosage: 3
     Route: 048
     Dates: start: 202311

REACTIONS (51)
  - Deafness unilateral [Not Recovered/Not Resolved]
  - Lung disorder [Not Recovered/Not Resolved]
  - Vomiting [Recovered/Resolved]
  - Decreased appetite [Not Recovered/Not Resolved]
  - Urine output increased [Not Recovered/Not Resolved]
  - Heat illness [Recovered/Resolved]
  - Pruritus [Not Recovered/Not Resolved]
  - Sensation of foreign body [Not Recovered/Not Resolved]
  - Nausea [Recovering/Resolving]
  - Eructation [Recovering/Resolving]
  - Weight decreased [Not Recovered/Not Resolved]
  - Gastrooesophageal reflux disease [Not Recovered/Not Resolved]
  - Diarrhoea [Recovering/Resolving]
  - Hyperhidrosis [Not Recovered/Not Resolved]
  - Faeces discoloured [Not Recovered/Not Resolved]
  - Dyspnoea [Recovering/Resolving]
  - Anxiety [Not Recovered/Not Resolved]
  - Eczema [Recovered/Resolved]
  - Pruritus [Not Recovered/Not Resolved]
  - Photodermatosis [Not Recovered/Not Resolved]
  - Cough [Recovered/Resolved]
  - Chest pain [Not Recovered/Not Resolved]
  - Skin laxity [Not Recovered/Not Resolved]
  - Musculoskeletal discomfort [Not Recovered/Not Resolved]
  - Taste disorder [Not Recovered/Not Resolved]
  - Skin irritation [Not Recovered/Not Resolved]
  - Dysphagia [Not Recovered/Not Resolved]
  - Hot flush [Not Recovered/Not Resolved]
  - Back pain [Not Recovered/Not Resolved]
  - Oropharyngeal discomfort [Not Recovered/Not Resolved]
  - Feeling hot [Not Recovered/Not Resolved]
  - Erythema [Not Recovered/Not Resolved]
  - Dry skin [Not Recovered/Not Resolved]
  - Insomnia [Not Recovered/Not Resolved]
  - Physical deconditioning [Not Recovered/Not Resolved]
  - Blood albumin decreased [Not Recovered/Not Resolved]
  - Glomerular filtration rate decreased [Not Recovered/Not Resolved]
  - Protein total decreased [Not Recovered/Not Resolved]
  - Haematocrit decreased [Not Recovered/Not Resolved]
  - Feeling hot [Not Recovered/Not Resolved]
  - Skin irritation [Recovered/Resolved]
  - Skin exfoliation [Not Recovered/Not Resolved]
  - Pelvic pain [Not Recovered/Not Resolved]
  - Hernia [Not Recovered/Not Resolved]
  - Groin pain [Not Recovered/Not Resolved]
  - Faeces hard [Not Recovered/Not Resolved]
  - Hernia pain [Not Recovered/Not Resolved]
  - Illness [Not Recovered/Not Resolved]
  - Product dose omission issue [Unknown]
  - Treatment noncompliance [Not Recovered/Not Resolved]
  - Cardiac disorder [Not Recovered/Not Resolved]

NARRATIVE: CASE EVENT DATE: 20230101
